FAERS Safety Report 8137768-7 (Version None)
Quarter: 2012Q1

REPORT INFORMATION
  Report Type: 
  Country: None (occurrence: None)
  Receive Date: 20120213
  Receipt Date: 20120124
  Transmission Date: 20120608
  Serious: Yes (Other)
  Sender: FDA-Public Use
  Company Number: 2012BN000011

PATIENT
  Age: 14 Month
  Sex: Male

DRUGS (7)
  1. VINCRISTINE SULFATE [Concomitant]
  2. ETOPOSIDE [Concomitant]
  3. MELPHALAN HYDROCHLORIDE [Suspect]
     Indication: RETINOBLASTOMA
     Dosage: 5 MG;; IART
     Route: 014
  4. HEPARIN [Concomitant]
  5. CARBOPLATIN [Suspect]
     Indication: RETINOBLASTOMA
     Dosage: 30 MG;;IART
     Route: 014
  6. ASPIRIN [Concomitant]
  7. CARBOPLATIN [Concomitant]

REACTIONS (6)
  - EYELID OEDEMA [None]
  - RETINAL DETACHMENT [None]
  - ARTERIAL SPASM [None]
  - EXTRAOCULAR MUSCLE DISORDER [None]
  - EYELID PTOSIS [None]
  - ARTERIAL DISORDER [None]
